FAERS Safety Report 4711527-7 (Version None)
Quarter: 2005Q3

REPORT INFORMATION
  Report Type: 
  Country: None (occurrence: None)
  Receive Date: 20050708
  Receipt Date: 20050708
  Transmission Date: 20060218
  Serious: Yes (Other)
  Sender: FDA-Public Use
  Company Number: None

PATIENT
  Age: 48 Year
  Sex: Female
  Weight: 62.1428 kg

DRUGS (4)
  1. FENTANYL [Suspect]
     Indication: PAIN
     Dosage: 1 PATCH APPLIED EVERY 72 HOURS
     Dates: start: 20050309
  2. HYDROCODONE BITARTRATE [Concomitant]
  3. AMITRIPTYLINE HCL [Concomitant]
  4. UNNAMED MUSCLE RLAXANT [Concomitant]

REACTIONS (2)
  - DRUG INEFFECTIVE [None]
  - PHARMACEUTICAL PRODUCT COMPLAINT [None]
